FAERS Safety Report 25971400 (Version 1)
Quarter: 2025Q4

REPORT INFORMATION
  Report Type: Spontaneous
  Country: US (occurrence: US)
  Receive Date: 20251028
  Receipt Date: 20251028
  Transmission Date: 20260118
  Serious: Yes (Other)
  Sender: BRISTOL-MYERS SQUIBB COMPANY
  Company Number: US-BRISTOL-MYERS SQUIBB COMPANY-2025-146573

PATIENT
  Age: 58 Year
  Sex: Female

DRUGS (1)
  1. DASATINIB [Suspect]
     Active Substance: DASATINIB
     Indication: Acute lymphocytic leukaemia
     Dosage: ROUTE: OTHER

REACTIONS (7)
  - Dizziness [Unknown]
  - Pyrexia [Unknown]
  - Pulmonary oedema [Unknown]
  - Headache [Unknown]
  - Infection [Unknown]
  - Pain [Unknown]
  - Pericardial effusion [Unknown]
